FAERS Safety Report 6519611-2 (Version None)
Quarter: 2009Q4

REPORT INFORMATION
  Report Type: 
  Country: None (occurrence: None)
  Receive Date: 20091228
  Receipt Date: 20091214
  Transmission Date: 20100525
  Serious: Yes (Other)
  Sender: FDA-Public Use
  Company Number: DE-MYLANLABS-2009S1021462

PATIENT
  Sex: Female
  Weight: 106 kg

DRUGS (1)
  1. VENLAFAXIN [Suspect]
     Indication: DEPRESSION
     Dosage: DAILY DOSE: 150 MG MILLGRAM(S) EVERY DAYS
     Dates: start: 20090101, end: 20091001

REACTIONS (5)
  - BONE PAIN [None]
  - FEELING COLD [None]
  - MYALGIA [None]
  - OROPHARYNGEAL PAIN [None]
  - TRANSAMINASES INCREASED [None]
